FAERS Safety Report 7987810-9 (Version None)
Quarter: 2011Q4

REPORT INFORMATION
  Report Type: 
  Country: None (occurrence: None)
  Receive Date: 20111216
  Receipt Date: 20101110
  Transmission Date: 20120403
  Serious: No
  Sender: FDA-Public Use
  Company Number: US-BRISTOL-MYERS SQUIBB COMPANY-15377401

PATIENT
  Age: 32 Year
  Sex: Female

DRUGS (5)
  1. METFORMIN HCL [Concomitant]
  2. ABILIFY [Suspect]
  3. PRISTIQ [Concomitant]
  4. AVAPRO [Concomitant]
  5. AMBIEN [Concomitant]

REACTIONS (1)
  - BLOOD CREATINE PHOSPHOKINASE INCREASED [None]
